FAERS Safety Report 9677339 (Version 2)
Quarter: 2013Q4

REPORT INFORMATION
  Report Type: Spontaneous
  Country: US (occurrence: US)
  Receive Date: 20131108
  Receipt Date: 20131119
  Transmission Date: 20140711
  Serious: No
  Sender: FDA-Public Use
  Company Number: US-PFIZER INC-2013316405

PATIENT
  Age: 70 Year
  Sex: Male
  Weight: 72.56 kg

DRUGS (2)
  1. PROTONIX [Suspect]
     Indication: GASTROOESOPHAGEAL REFLUX DISEASE
     Dosage: 40 MG, 2X/DAY
     Route: 048
     Dates: start: 2009
  2. TOVIAZ [Suspect]
     Indication: AUTOMATIC BLADDER
     Dosage: 8 MG, 1X/DAY
     Route: 048
     Dates: start: 2009

REACTIONS (3)
  - Oropharyngeal pain [Unknown]
  - Dysphonia [Unknown]
  - Drug effect decreased [Unknown]
